FAERS Safety Report 10866638 (Version 1)
Quarter: 2015Q1

REPORT INFORMATION
  Report Type: Spontaneous
  Country: US (occurrence: None)
  Receive Date: 20150220
  Receipt Date: 20150220
  Transmission Date: 20150721
  Serious: No
  Sender: FDA-Public Use
  Company Number: None

PATIENT
  Age: 59 Year
  Sex: Female
  Weight: 46.9 kg

DRUGS (3)
  1. BEVACIZUMAB (RHUMAB VEGF) [Suspect]
     Active Substance: BEVACIZUMAB
     Dates: end: 20150119
  2. CARBOPLATIN. [Suspect]
     Active Substance: CARBOPLATIN
     Dates: end: 20150119
  3. TAXOL [Suspect]
     Active Substance: PACLITAXEL
     Dates: end: 20150119

REACTIONS (3)
  - Hypocalcaemia [None]
  - Muscular weakness [None]
  - Thrombocytopenia [None]

NARRATIVE: CASE EVENT DATE: 20150211
